FAERS Safety Report 20095842 (Version 2)
Quarter: 2021Q4

REPORT INFORMATION
  Report Type: Report from Study
  Country: KR (occurrence: KR)
  Receive Date: 20211122
  Receipt Date: 20211129
  Transmission Date: 20220303
  Serious: Yes (Hospitalization)
  Sender: FDA-Public Use
  Company Number: KR-GLAXOSMITHKLINE-KR2021GSK239289

PATIENT
  Age: 76 Year
  Sex: Male
  Weight: 78 kg

DRUGS (7)
  1. FLUTICASONE FUROATE\UMECLIDINIUM BROMIDE\VILANTEROL TRIFENATATE [Suspect]
     Active Substance: FLUTICASONE FUROATE\UMECLIDINIUM BROMIDE\VILANTEROL TRIFENATATE
     Indication: Chronic obstructive pulmonary disease
     Dosage: 1 DF, QD
     Route: 055
     Dates: start: 20210907
  2. ASIMA TABLET [Concomitant]
     Indication: Chronic obstructive pulmonary disease
     Dosage: 400 MG, BID
     Route: 048
     Dates: start: 20051024
  3. DAXAS TABLET [Concomitant]
     Indication: Chronic obstructive pulmonary disease
     Dosage: 1 DF, QD
     Route: 048
     Dates: start: 20170925
  4. ASPIRIN PROTECT TABLET [Concomitant]
     Indication: Hypertension
     Dosage: 100 MG, QD
     Route: 048
     Dates: start: 20141022
  5. LIPITOR [Concomitant]
     Active Substance: ATORVASTATIN CALCIUM
     Dosage: 10 MG, QD
     Route: 048
     Dates: start: 20130424
  6. APROVEL TABLET [Concomitant]
     Indication: Hypertension
     Dosage: 150 MG, QD
     Route: 048
     Dates: start: 20190916
  7. ZEMIMET SR TABLET [Concomitant]
     Indication: Type 2 diabetes mellitus
     Dosage: 1 DF, QD
     Route: 048
     Dates: start: 20180326

REACTIONS (1)
  - Dyspnoea [Recovered/Resolved]

NARRATIVE: CASE EVENT DATE: 20211108
